FAERS Safety Report 4672896-X (Version None)
Quarter: 2005Q2

REPORT INFORMATION
  Report Type: 
  Country: None (occurrence: None)
  Receive Date: 20050524
  Receipt Date: 20050510
  Transmission Date: 20051028
  Serious: Yes (Other)
  Sender: FDA-Public Use
  Company Number: 2005072667

PATIENT
  Age: 61 Year
  Sex: Male
  Weight: 89.8122 kg

DRUGS (3)
  1. DRAMAMINE [Suspect]
     Indication: MOTION SICKNESS
     Dosage: 1 TABLET TWICE ORAL
     Route: 048
     Dates: start: 20050423, end: 20050423
  2. TAMSULOZIN HYDROCHLORIDE [Concomitant]
  3. SALBUTAMOL [Concomitant]

REACTIONS (6)
  - BLOOD PRESSURE DECREASED [None]
  - DIZZINESS [None]
  - FEELING COLD [None]
  - HYPERHIDROSIS [None]
  - LOSS OF CONSCIOUSNESS [None]
  - NAUSEA [None]
